FAERS Safety Report 9625652 (Version 3)
Quarter: 2013Q4

REPORT INFORMATION
  Report Type: Spontaneous
  Country: US (occurrence: US)
  Receive Date: 20131016
  Receipt Date: 20131126
  Transmission Date: 20140711
  Serious: No
  Sender: FDA-Public Use
  Company Number: US-ROXANE LABORATORIES, INC.-2013-RO-01686RO

PATIENT
  Age: 63 Year
  Sex: Female
  Weight: 68 kg

DRUGS (17)
  1. ROXICET [Suspect]
     Indication: PAIN
  2. ROXICET [Suspect]
     Indication: INTERVERTEBRAL DISC DEGENERATION
  3. ROXICET [Suspect]
     Indication: OSTEOPOROSIS
  4. ROXICET [Suspect]
     Indication: OSTEOPENIA
  5. BUSPAR [Concomitant]
     Indication: ANXIETY
     Dosage: 15 MG
  6. SEROQUEL [Concomitant]
     Indication: SLEEP DISORDER
     Dosage: 25 MG
  7. AMITRIPTYLINE [Concomitant]
     Indication: ANXIETY
     Dosage: 25 MG
  8. PROZAC [Concomitant]
     Indication: DEPRESSION
  9. ZEGERID [Concomitant]
  10. VITAMIN B 12 [Concomitant]
     Dosage: 1000 MCG
  11. CENTRUM SILVER [Concomitant]
  12. FISH OIL [Concomitant]
     Dosage: 1000 MG
  13. MILK OF MAGNESIA [Concomitant]
  14. ACIDOPHILUS [Concomitant]
     Indication: CONSTIPATION
  15. GREEN COFFEE BEAN [Concomitant]
     Indication: MEDICAL DIET
  16. AFRICAN MANGO WEIGHT LOSS [Concomitant]
     Indication: NUTRITIONAL SUPPLEMENTATION
  17. CLONAZEPAM [Concomitant]
     Indication: ANXIETY

REACTIONS (2)
  - Analgesic drug level decreased [Unknown]
  - Product quality issue [Unknown]
